FAERS Safety Report 9369984 (Version 4)
Quarter: 2013Q3

REPORT INFORMATION
  Report Type: Spontaneous
  Country: DK (occurrence: DK)
  Receive Date: 20130626
  Receipt Date: 20130816
  Transmission Date: 20140515
  Serious: Yes (Other)
  Sender: FDA-Public Use
  Company Number: DK-PFIZER INC-2013184560

PATIENT
  Age: 41 Year
  Sex: Female

DRUGS (6)
  1. DOXORUBICIN HCL [Suspect]
     Indication: EWING^S SARCOMA
     Dosage: 40 MG FOR 3 DAYS, CYCLIC
  2. ETOPOSIDE [Suspect]
     Indication: EWING^S SARCOMA
     Dosage: 300 MG FOR 3 DAYS, CYCLIC
  3. IFOSFAMIDE [Suspect]
     Indication: EWING^S SARCOMA
     Dosage: 6 G FOR 3 DAYS, CYCLIC
  4. VINCRISTINE [Suspect]
     Indication: EWING^S SARCOMA
     Dosage: 2 MG, CYCLIC
  5. PREDNISOLONE [Concomitant]
     Dosage: UNK
  6. MIRTAZAPINE [Concomitant]
     Dosage: UNK

REACTIONS (4)
  - Bone marrow failure [Unknown]
  - Renal impairment [Unknown]
  - Mucosal inflammation [Unknown]
  - Oral candidiasis [Unknown]
